FAERS Safety Report 4311117-4 (Version None)
Quarter: 2004Q1

REPORT INFORMATION
  Report Type: 
  Country: None (occurrence: None)
  Receive Date: 20040302
  Receipt Date: 20040218
  Transmission Date: 20041129
  Serious: Yes (Other)
  Sender: FDA-Public Use
  Company Number: 2003034448

PATIENT
  Age: 75 Year
  Sex: Male
  Weight: 76 kg

DRUGS (5)
  1. SORTIS (ATORVASTATIN) [Suspect]
     Indication: HYPERCHOLESTEROLAEMIA
     Dosage: 10 MG (DAILY), ORAL
     Route: 048
     Dates: start: 20000501, end: 20040213
  2. ACETYLSALICYLIC ACID SRT [Concomitant]
  3. METOPROLOL TARTRATE [Concomitant]
  4. LOSARTATIN POTASSIUM (LOSARTAN POTASSIUM) [Concomitant]
  5. TAMSULOSIN HYDROCHLORIDE (TAMULOSIN HYDROCHLORIDE) [Concomitant]

REACTIONS (3)
  - ARTERIAL RESTENOSIS [None]
  - BLOOD CREATINE PHOSPHOKINASE INCREASED [None]
  - STENT OCCLUSION [None]
